FAERS Safety Report 24172146 (Version 2)
Quarter: 2024Q3

REPORT INFORMATION
  Report Type: Spontaneous
  Country: US (occurrence: US)
  Receive Date: 20240805
  Receipt Date: 20240805
  Transmission Date: 20241016
  Serious: Yes (Death)
  Sender: ROCHE
  Company Number: US-ROCHE-10000046991

PATIENT
  Sex: Female

DRUGS (1)
  1. COTELLIC [Suspect]
     Active Substance: COBIMETINIB
     Indication: Colon cancer
     Dosage: DAILY ON DAYS 1-21 OF EACH 28 DAY CYCLE
     Route: 048

REACTIONS (2)
  - Death [Fatal]
  - Off label use [Unknown]
